FAERS Safety Report 10666095 (Version 2)
Quarter: 2015Q1

REPORT INFORMATION
  Report Type: Spontaneous
  Country: JP (occurrence: JP)
  Receive Date: 20141219
  Receipt Date: 20150113
  Transmission Date: 20150720
  Serious: Yes (Life-Threatening, Hospitalization)
  Sender: FDA-Public Use
  Company Number: PHHY2014JP165174

PATIENT
  Age: 74 Year
  Sex: Female

DRUGS (1)
  1. RIVASTIGMINE [Suspect]
     Active Substance: RIVASTIGMINE
     Indication: DEMENTIA WITH LEWY BODIES
     Dosage: 9 MG, QD
     Route: 062
     Dates: start: 201208, end: 201210

REACTIONS (7)
  - Blood pressure decreased [Recovered/Resolved]
  - Faeces discoloured [Recovered/Resolved]
  - Agitation [Unknown]
  - Product use issue [Unknown]
  - Shock haemorrhagic [Recovered/Resolved]
  - Gastric ulcer haemorrhage [Recovered/Resolved]
  - Hallucination, visual [Unknown]

NARRATIVE: CASE EVENT DATE: 201210
